FAERS Safety Report 6342457-5 (Version None)
Quarter: 2009Q3

REPORT INFORMATION
  Report Type: 
  Country: None (occurrence: None)
  Receive Date: 20090908
  Receipt Date: 20030529
  Transmission Date: 20100115
  Serious: No
  Sender: FDA-Public Use
  Company Number: JP-ROCHE-333723

PATIENT
  Sex: Female
  Weight: 3.6 kg

DRUGS (1)
  1. TAMIFLU [Suspect]
     Dates: start: 20030202, end: 20030207

REACTIONS (1)
  - DRUG EXPOSURE DURING PREGNANCY [None]
